FAERS Safety Report 13566431 (Version 19)
Quarter: 2021Q2

REPORT INFORMATION
  Report Type: Report from Study
  Country: None (occurrence: NL)
  Receive Date: 20170521
  Receipt Date: 20210428
  Transmission Date: 20210716
  Serious: Yes (Hospitalization, Other)
  Sender: FDA-Public Use
  Company Number: NL-ABBVIE-17K-114-1976327-00

PATIENT
  Age: 78 Year
  Sex: Male
  Weight: 65 kg

DRUGS (6)
  1. DUODOPA [Suspect]
     Active Substance: CARBIDOPA\LEVODOPA
     Dosage: MD 3, CD 2.8, ED 2
     Route: 050
  2. DUODOPA [Suspect]
     Active Substance: CARBIDOPA\LEVODOPA
     Dosage: REMAINS AT 16 HOURS
     Route: 050
  3. RIVASTIGMINE. [Concomitant]
     Active Substance: RIVASTIGMINE
     Indication: PRODUCT USED FOR UNKNOWN INDICATION
  4. DUODOPA [Suspect]
     Active Substance: CARBIDOPA\LEVODOPA
     Indication: PARKINSON^S DISEASE
     Dosage: MD 6, CD 2.8, ED 2
     Route: 050
     Dates: start: 20080611
  5. DUODOPA [Suspect]
     Active Substance: CARBIDOPA\LEVODOPA
     Dosage: MD: 6.0, CD: 2.8, ED: 2.0?16 HOUR ADMINISTRATION
     Route: 050
  6. MAGNESIUM [Concomitant]
     Active Substance: MAGNESIUM
     Indication: ABNORMAL FAECES
     Dosage: 3?4 TABLETS
     Route: 048

REACTIONS (69)
  - Enuresis [Not Recovered/Not Resolved]
  - Decreased appetite [Not Recovered/Not Resolved]
  - Gastric disorder [Not Recovered/Not Resolved]
  - Vomiting [Recovered/Resolved]
  - Dysphagia [Not Recovered/Not Resolved]
  - Stress [Unknown]
  - Speech disorder [Not Recovered/Not Resolved]
  - Mobility decreased [Not Recovered/Not Resolved]
  - Small intestine ulcer [Not Recovered/Not Resolved]
  - Stoma site erythema [Unknown]
  - Cognitive disorder [Not Recovered/Not Resolved]
  - General physical health deterioration [Not Recovered/Not Resolved]
  - Hypophagia [Not Recovered/Not Resolved]
  - Muscle spasms [Not Recovered/Not Resolved]
  - Decreased appetite [Recovered/Resolved]
  - Muscle rigidity [Recovered/Resolved]
  - Stoma site erythema [Recovered/Resolved]
  - Hallucination [Recovered/Resolved]
  - Device breakage [Recovered/Resolved]
  - Abnormal dreams [Not Recovered/Not Resolved]
  - Gastrointestinal stoma complication [Not Recovered/Not Resolved]
  - Oesophageal discomfort [Not Recovered/Not Resolved]
  - Peripheral coldness [Recovered/Resolved]
  - Weight increased [Recovered/Resolved]
  - Bowel movement irregularity [Not Recovered/Not Resolved]
  - Hyperkinesia [Recovered/Resolved]
  - Constipation [Recovered/Resolved]
  - Therapeutic product effect incomplete [Recovered/Resolved]
  - Gait disturbance [Not Recovered/Not Resolved]
  - Dyskinesia [Unknown]
  - Diarrhoea [Not Recovered/Not Resolved]
  - Hallucination [Recovering/Resolving]
  - Muscle rigidity [Not Recovered/Not Resolved]
  - Musculoskeletal disorder [Not Recovered/Not Resolved]
  - Medical device site ulcer [Recovered/Resolved]
  - Eating disorder [Recovered/Resolved]
  - Intentional overdose [Recovered/Resolved]
  - Device dislocation [Not Recovered/Not Resolved]
  - Weight decreased [Recovered/Resolved]
  - Pain [Not Recovered/Not Resolved]
  - Diarrhoea [Recovered/Resolved]
  - Stoma site pain [Recovered/Resolved]
  - Freezing phenomenon [Recovered/Resolved]
  - Hallucination [Recovered/Resolved]
  - Parkinson^s disease [Not Recovered/Not Resolved]
  - Device leakage [Recovered/Resolved]
  - Device kink [Unknown]
  - Restlessness [Recovering/Resolving]
  - Infrequent bowel movements [Not Recovered/Not Resolved]
  - Poor quality sleep [Recovered/Resolved]
  - Vomiting [Not Recovered/Not Resolved]
  - Tremor [Recovered/Resolved]
  - On and off phenomenon [Recovered/Resolved]
  - Therapeutic product effect variable [Recovered/Resolved]
  - Device dislocation [Recovered/Resolved]
  - Stoma site discomfort [Not Recovered/Not Resolved]
  - Bradykinesia [Not Recovered/Not Resolved]
  - Device dislocation [Recovered/Resolved]
  - Device adhesion issue [Recovered/Resolved]
  - Memory impairment [Not Recovered/Not Resolved]
  - Incorrect product administration duration [Not Recovered/Not Resolved]
  - Secretion discharge [Not Recovered/Not Resolved]
  - Dystonia [Not Recovered/Not Resolved]
  - Tremor [Not Recovered/Not Resolved]
  - Parkinsonism [Not Recovered/Not Resolved]
  - Dyskinesia [Recovered/Resolved]
  - Frequent bowel movements [Not Recovered/Not Resolved]
  - Dyskinesia [Not Recovered/Not Resolved]
  - Poor quality sleep [Not Recovered/Not Resolved]

NARRATIVE: CASE EVENT DATE: 20170517
